FAERS Safety Report 23701382 (Version 1)
Quarter: 2024Q2

REPORT INFORMATION
  Report Type: Other
  Country: CN (occurrence: CN)
  Receive Date: 20240403
  Receipt Date: 20240403
  Transmission Date: 20240716
  Serious: Yes (Other)
  Sender: FDA-Public Use
  Company Number: CN-ASTELLAS-2024US009874

PATIENT
  Age: 47 Year
  Sex: Male

DRUGS (6)
  1. ISAVUCONAZOLE [Suspect]
     Active Substance: ISAVUCONAZOLE
     Indication: Therapeutic procedure
     Route: 041
     Dates: start: 20240125, end: 20240201
  2. ISAVUCONAZOLE [Suspect]
     Active Substance: ISAVUCONAZOLE
     Indication: Anti-infective therapy
  3. TIGECYCLINE [Suspect]
     Active Substance: TIGECYCLINE
     Indication: Therapeutic procedure
     Route: 041
     Dates: start: 20240125, end: 20240201
  4. TIGECYCLINE [Suspect]
     Active Substance: TIGECYCLINE
     Indication: Anti-infective therapy
  5. BIAPENEM [Suspect]
     Active Substance: BIAPENEM
     Indication: Therapeutic procedure
     Route: 041
     Dates: start: 20240125, end: 20240201
  6. BIAPENEM [Suspect]
     Active Substance: BIAPENEM
     Indication: Anti-infective therapy

REACTIONS (3)
  - Haematochezia [Recovering/Resolving]
  - Blood fibrinogen decreased [Recovering/Resolving]
  - Intentional product use issue [Unknown]
